FAERS Safety Report 5206728-8 (Version None)
Quarter: 2006Q4

REPORT INFORMATION
  Report Type: 
  Country: None (occurrence: None)
  Receive Date: 20061030
  Receipt Date: 20060908
  Transmission Date: 20070319
  Serious: No
  Sender: FDA-Public Use
  Company Number: 257020

PATIENT
  Age: 51 Year
  Sex: Female
  Weight: 54 kg

DRUGS (4)
  1. LEVEMIR [Suspect]
     Indication: DIABETES MELLITUS INSULIN-DEPENDENT
     Dosage: 22 IU, QD IN A.M. , SUBCUTANEOUS
     Route: 058
     Dates: start: 20060904
  2. NOVOLOG [Concomitant]
  3. ASPIRIN [Concomitant]
  4. ALTACE [Concomitant]

REACTIONS (1)
  - BLOOD GLUCOSE INCREASED [None]
